FAERS Safety Report 22752980 (Version 3)
Quarter: 2023Q4

REPORT INFORMATION
  Report Type: Spontaneous
  Country: JP (occurrence: JP)
  Receive Date: 20230726
  Receipt Date: 20231106
  Transmission Date: 20240110
  Serious: Yes (Hospitalization, Other)
  Sender: FDA-Public Use
  Company Number: JP-ONO-2023JP018990

PATIENT
  Age: 71 Year
  Sex: Male
  Weight: 47.4 kg

DRUGS (6)
  1. OPDIVO [Suspect]
     Active Substance: NIVOLUMAB
     Indication: Oesophageal carcinoma
     Route: 041
     Dates: start: 20220630, end: 20230216
  2. VONOPRAZAN FUMARATE [Concomitant]
     Active Substance: VONOPRAZAN FUMARATE
     Indication: Product used for unknown indication
     Dosage: 20 MG, EVERYDAY
     Route: 048
     Dates: start: 20220228
  3. BIO-THREE [Concomitant]
     Active Substance: HERBALS
     Indication: Product used for unknown indication
     Dosage: 1 DF, Q8H
     Route: 048
     Dates: start: 20220506
  4. AMLODIPINE [Concomitant]
     Active Substance: AMLODIPINE BESYLATE
     Indication: Product used for unknown indication
     Dosage: 5 MG, EVERYDAY
     Route: 048
     Dates: start: 20220424
  5. LINAGLIPTIN [Concomitant]
     Active Substance: LINAGLIPTIN
     Indication: Product used for unknown indication
     Dosage: 5 MG, EVERYDAY
     Route: 048
     Dates: start: 20220915
  6. RACOL [CHLORAMPHENICOL SODIUM SUCCINATE] [Concomitant]
     Indication: Product used for unknown indication
     Dosage: 2 DF, EVERYDAY?FOR SOLUTION (OTHER)
     Dates: start: 20220509

REACTIONS (5)
  - Embolic cerebral infarction [Recovered/Resolved with Sequelae]
  - Oesophageal cancer metastatic [Unknown]
  - Embolic stroke [Recovered/Resolved with Sequelae]
  - Arteriosclerosis [Unknown]
  - Dehydration [Unknown]

NARRATIVE: CASE EVENT DATE: 20230330
